FAERS Safety Report 5136126-7 (Version None)
Quarter: 2006Q4

REPORT INFORMATION
  Report Type: 
  Country: None (occurrence: None)
  Receive Date: 20061027
  Receipt Date: 20061024
  Transmission Date: 20070319
  Serious: Yes (Other)
  Sender: FDA-Public Use
  Company Number: JP-BAYER-200611159BYL

PATIENT

DRUGS (1)
  1. ADALAT [Suspect]
     Dosage: UNIT DOSE: 20 MG
     Route: 048

REACTIONS (1)
  - INTENTIONAL OVERDOSE [None]
